FAERS Safety Report 7039514-7 (Version None)
Quarter: 2010Q4

REPORT INFORMATION
  Report Type: 
  Country: None (occurrence: None)
  Receive Date: 20101012
  Receipt Date: 20101005
  Transmission Date: 20110411
  Serious: Yes (Hospitalization, Other)
  Sender: FDA-Public Use
  Company Number: US-AMGEN-US367015

PATIENT
  Sex: Female
  Weight: 63.6 kg

DRUGS (11)
  1. NPLATE [Suspect]
     Indication: IDIOPATHIC THROMBOCYTOPENIC PURPURA
     Route: 058
     Dates: start: 20090514, end: 20091014
  2. PROMACTA [Suspect]
     Dates: start: 20091203, end: 20091207
  3. COUMADIN [Concomitant]
  4. IMURAN [Concomitant]
  5. BACTRIM [Concomitant]
  6. NEURONTIN [Concomitant]
  7. ATENOLOL [Concomitant]
  8. FOLIC ACID [Concomitant]
  9. DARVOCET-N 100 [Concomitant]
  10. LORTAB [Concomitant]
  11. PREDNISONE [Concomitant]
     Dates: start: 20091207

REACTIONS (9)
  - BLISTER [None]
  - EMBOLISM ARTERIAL [None]
  - HEADACHE [None]
  - ISCHAEMIA [None]
  - NEURALGIA [None]
  - PAIN [None]
  - PLATELET COUNT DECREASED [None]
  - RASH [None]
  - SINUS CONGESTION [None]
